FAERS Safety Report 9171901 (Version 1)
Quarter: 2013Q1

REPORT INFORMATION
  Report Type: Spontaneous
  Country: US (occurrence: US)
  Receive Date: 20130319
  Receipt Date: 20130319
  Transmission Date: 20140127
  Serious: No
  Sender: FDA-Public Use
  Company Number: US-PFIZER INC-2013091150

PATIENT
  Age: 52 Year
  Sex: Male
  Weight: 110 kg

DRUGS (2)
  1. LYRICA [Suspect]
     Indication: NEUROPATHY PERIPHERAL
     Dosage: 225 MG, 2X/DAY
     Route: 048
     Dates: start: 2010, end: 201303
  2. VYTORIN [Concomitant]
     Dosage: UNK

REACTIONS (1)
  - Malaise [Not Recovered/Not Resolved]
